FAERS Safety Report 19574126 (Version 1)
Quarter: 2021Q3

REPORT INFORMATION
  Report Type: Spontaneous
  Country: CA (occurrence: CA)
  Receive Date: 20210718
  Receipt Date: 20210718
  Transmission Date: 20211014
  Serious: Yes (Other)
  Sender: FDA-Public Use
  Company Number: CA-JNJFOC-20210729650

PATIENT
  Age: 51 Year
  Sex: Female
  Weight: 48 kg

DRUGS (5)
  1. HYDROCORTISONE. [Concomitant]
     Active Substance: HYDROCORTISONE
     Indication: PREMEDICATION
     Route: 042
  2. INFLIXIMAB, RECOMBINANT [Suspect]
     Active Substance: INFLIXIMAB
     Indication: CROHN^S DISEASE
     Route: 042
  3. ACETAMINOPHEN. [Concomitant]
     Active Substance: ACETAMINOPHEN
     Indication: PREMEDICATION
     Route: 048
  4. BENADRYL [Concomitant]
     Active Substance: DIPHENHYDRAMINE HYDROCHLORIDE
     Indication: PREMEDICATION
     Route: 042
  5. DIPHENHYDRAMINE. [Concomitant]
     Active Substance: DIPHENHYDRAMINE
     Indication: PREMEDICATION
     Route: 042

REACTIONS (14)
  - Body temperature decreased [Unknown]
  - Condition aggravated [Unknown]
  - Fracture [Unknown]
  - Infusion site pain [Unknown]
  - Blood calcium decreased [Unknown]
  - Intentional product use issue [Unknown]
  - Inappropriate schedule of product administration [Unknown]
  - Infusion site discolouration [Unknown]
  - Blood pressure increased [Unknown]
  - Nervousness [Unknown]
  - Arthralgia [Unknown]
  - Malaise [Unknown]
  - Off label use [Unknown]
  - Weight increased [Unknown]
